FAERS Safety Report 9866762 (Version 1)
Quarter: 2014Q1

REPORT INFORMATION
  Report Type: Report from Study
  Country: GB (occurrence: GB)
  Receive Date: 20140204
  Receipt Date: 20140204
  Transmission Date: 20141002
  Serious: Yes (Death, Other)
  Sender: FDA-Public Use
  Company Number: GB-ROCHE-1339119

PATIENT
  Sex: Female
  Weight: 47 kg

DRUGS (2)
  1. RITUXIMAB [Suspect]
     Indication: RHEUMATOID ARTHRITIS
     Dosage: DATE OF LAST DOSE PRIOR TO SAE :  06/SEP/2012.
     Route: 065
     Dates: start: 20100227
  2. METHOTREXATE [Concomitant]

REACTIONS (5)
  - Bronchiectasis [Fatal]
  - Pneumonia [Fatal]
  - Hernia obstructive [Unknown]
  - Chronic obstructive pulmonary disease [Unknown]
  - Myocardial ischaemia [Unknown]
